FAERS Safety Report 9701475 (Version 2)
Quarter: 2013Q4

REPORT INFORMATION
  Report Type: Spontaneous
  Country: HR (occurrence: HR)
  Receive Date: 20131121
  Receipt Date: 20131121
  Transmission Date: 20140711
  Serious: Yes (Life-Threatening, Hospitalization, Other)
  Sender: FDA-Public Use
  Company Number: HR-SA-POMP-1000170

PATIENT
  Age: 11 Month
  Sex: Female
  Weight: 8.4 kg

DRUGS (11)
  1. ALGLUCOSIDASE ALFA [Suspect]
     Indication: GLYCOGEN STORAGE DISEASE TYPE II
     Dosage: 20 MG/KG, Q2W
     Route: 042
     Dates: start: 20071015, end: 20080513
  2. ALGLUCOSIDASE ALFA [Suspect]
     Indication: GLYCOGEN STORAGE DISEASE TYPE II
     Dosage: 20 MG/KG, Q2W
     Route: 042
     Dates: start: 20071015, end: 20080513
  3. ALGLUCOSIDASE ALFA [Suspect]
     Indication: GLYCOGEN STORAGE DISEASE TYPE II
     Dosage: 20 MG/KG, Q2W
     Route: 042
     Dates: start: 20080513
  4. ALGLUCOSIDASE ALFA [Suspect]
     Indication: GLYCOGEN STORAGE DISEASE TYPE II
     Dosage: 20 MG/KG, Q2W
     Route: 042
     Dates: start: 20080513
  5. ALGLUCOSIDASE ALFA [Suspect]
     Indication: GLYCOGEN STORAGE DISEASE TYPE II
     Dosage: 40 MG/KG, QOW
     Route: 042
  6. ALGLUCOSIDASE ALFA [Suspect]
     Indication: GLYCOGEN STORAGE DISEASE TYPE II
     Dosage: 40 MG/KG, QOW
     Route: 042
  7. RITUXIMAB [Concomitant]
     Indication: IMMUNOSUPPRESSION
     Dosage: 375 MG/M2, UNK
     Route: 042
  8. METHOTREXATE [Concomitant]
     Indication: IMMUNOSUPPRESSION
     Dosage: 0.5 MG/KG, QW
     Route: 048
  9. IMMUNOGLOBULIN HUMAN NORMAL [Concomitant]
     Indication: IMMUNOSUPPRESSION
     Dosage: 500 MG/KG, Q4W
     Route: 042
  10. DIPHENHYDRAMINE [Concomitant]
     Indication: PREMEDICATION
  11. PREDNISONE [Concomitant]
     Indication: PREMEDICATION

REACTIONS (22)
  - Bronchial obstruction [Recovered/Resolved]
  - Nosocomial infection [Unknown]
  - Left ventricular hypertrophy [Recovering/Resolving]
  - Respiratory tract infection [Unknown]
  - Respiratory failure [Unknown]
  - Hypotonia [Unknown]
  - Hypersensitivity [Recovered/Resolved]
  - Dyspnoea [Recovered/Resolved]
  - Tachycardia [Recovered/Resolved]
  - Tachypnoea [Recovered/Resolved]
  - Oxygen saturation decreased [Recovered/Resolved]
  - Tachycardia [Recovered/Resolved]
  - Oxygen saturation decreased [Recovered/Resolved]
  - Tachypnoea [Recovered/Resolved]
  - Agitation [Recovered/Resolved]
  - Blood pressure increased [Recovered/Resolved]
  - Irritability [Recovered/Resolved]
  - Pallor [Recovered/Resolved]
  - Bronchospasm [Recovered/Resolved]
  - Hypotension [Unknown]
  - Bradycardia [Unknown]
  - Wheezing [Recovered/Resolved]
